FAERS Safety Report 6159910-X (Version None)
Quarter: 2009Q2

REPORT INFORMATION
  Report Type: 
  Country: None (occurrence: None)
  Receive Date: 20090415
  Receipt Date: 20090331
  Transmission Date: 20091009
  Serious: Yes (Other)
  Sender: FDA-Public Use
  Company Number: 2009S1005572

PATIENT
  Age: 1 Week
  Sex: Male

DRUGS (1)
  1. DIAZEPAM [Suspect]
     Dosage: 1.5 MG;ONCE;INTRAVENOUS
     Route: 042

REACTIONS (9)
  - CAESAREAN SECTION [None]
  - HYPERCHLORAEMIA [None]
  - HYPOTONIA NEONATAL [None]
  - INFANTILE APNOEIC ATTACK [None]
  - METABOLIC ACIDOSIS [None]
  - NEONATAL RESPIRATORY FAILURE [None]
  - OLIGURIA [None]
  - OVERDOSE [None]
  - SOMNOLENCE [None]
